FAERS Safety Report 24029903 (Version 4)
Quarter: 2024Q3

REPORT INFORMATION
  Report Type: Spontaneous
  Country: US (occurrence: US)
  Receive Date: 20240628
  Receipt Date: 20240710
  Transmission Date: 20241017
  Serious: Yes (Hospitalization, Other)
  Sender: BAYER
  Company Number: US-BAYER-2024A087808

PATIENT
  Age: 14 Year
  Sex: Female

DRUGS (1)
  1. MIRENA [Suspect]
     Active Substance: LEVONORGESTREL
     Dosage: 20?G/DAY
     Route: 015
     Dates: start: 20220725, end: 20230411

REACTIONS (21)
  - Intestinal perforation [None]
  - Uterine perforation [None]
  - Intestinal obstruction [None]
  - Intestinal obstruction [None]
  - Intestinal obstruction [None]
  - Intestinal obstruction [None]
  - Intestinal obstruction [None]
  - Hydrosalpinx [None]
  - Salpingitis [None]
  - Spinal fracture [None]
  - Gastrointestinal pain [None]
  - Gastrointestinal pain [None]
  - Gastrointestinal pain [None]
  - Device deployment issue [None]
  - Fallopian tube obstruction [None]
  - Infection [None]
  - Gastrooesophageal reflux disease [None]
  - Vomiting [None]
  - Post procedural complication [None]
  - Heavy menstrual bleeding [None]
  - Vaginal discharge [None]

NARRATIVE: CASE EVENT DATE: 20230428
